FAERS Safety Report 19359971 (Version 2)
Quarter: 2021Q2

REPORT INFORMATION
  Report Type: Spontaneous
  Country: RO (occurrence: RO)
  Receive Date: 20210602
  Receipt Date: 20210608
  Transmission Date: 20210717
  Serious: Yes (Other)
  Sender: FDA-Public Use
  Company Number: RO-MYLANLABS-2021M1031842

PATIENT
  Age: 38 Year
  Sex: Female
  Weight: 117 kg

DRUGS (1)
  1. LEPONEX [Suspect]
     Active Substance: CLOZAPINE
     Indication: PRODUCT USED FOR UNKNOWN INDICATION
     Dosage: UNK

REACTIONS (12)
  - Glossodynia [Unknown]
  - Weight increased [Unknown]
  - Movement disorder [Unknown]
  - Tongue disorder [Unknown]
  - Incorrect dose administered [Unknown]
  - Feeling drunk [Unknown]
  - Nasopharyngitis [Unknown]
  - Foaming at mouth [Unknown]
  - Oropharyngeal pain [Unknown]
  - Cough [Unknown]
  - Syncope [Unknown]
  - Pyrexia [Unknown]
